FAERS Safety Report 7638560 (Version 5)
Quarter: 2014Q2

REPORT INFORMATION
  Report Type: Spontaneous
  Country: US (occurrence: US)
  Receive Date: 20101025
  Receipt Date: 20140421
  Transmission Date: 20141212
  Serious: No
  Sender: FDA-Public Use
  Company Number: US-BIOGENIDEC-2010BI036248

PATIENT
  Age: 56 Year
  Sex: Female

DRUGS (1)
  1. TYSABRI [Suspect]
     Indication: MULTIPLE SCLEROSIS
     Route: 042
     Dates: start: 20101007, end: 20101104

REACTIONS (7)
  - Paraesthesia [Recovered/Resolved]
  - Adverse reaction [Unknown]
  - Hypoaesthesia [Recovered/Resolved]
  - Pruritus [Recovered/Resolved]
  - Drug specific antibody present [Unknown]
  - Balance disorder [Not Recovered/Not Resolved]
  - Hypersensitivity [Recovered/Resolved]
